FAERS Safety Report 4951455-5 (Version None)
Quarter: 2006Q1

REPORT INFORMATION
  Report Type: 
  Country: None (occurrence: None)
  Receive Date: 20060317
  Receipt Date: 20060302
  Transmission Date: 20060701
  Serious: Yes (Death)
  Sender: FDA-Public Use
  Company Number: 2006S1001877

PATIENT
  Age: 75 Year
  Sex: Male

DRUGS (8)
  1. CLOZAPINE [Suspect]
     Indication: DELUSION
     Dosage: 25 MG; QD; ORAL
     Route: 048
     Dates: start: 20060118, end: 20060201
  2. CLOZAPINE [Suspect]
     Indication: DEMENTIA
     Dosage: 25 MG; QD; ORAL
     Route: 048
     Dates: start: 20060118, end: 20060201
  3. MORPHINE [Concomitant]
  4. CITALOPRAM [Concomitant]
  5. HYOSCYAMINE [Concomitant]
  6. CARBIDOPA AND LEVODOPA [Concomitant]
  7. ACETAMINOPHEN [Concomitant]
  8. VITAMINS NOS [Concomitant]

REACTIONS (4)
  - DEMENTIA ALZHEIMER'S TYPE [None]
  - DEPRESSION [None]
  - GENERAL PHYSICAL HEALTH DETERIORATION [None]
  - PARKINSON'S DISEASE [None]
